FAERS Safety Report 12073660 (Version 1)
Quarter: 2016Q1

REPORT INFORMATION
  Report Type: Spontaneous
  Country: US (occurrence: US)
  Receive Date: 20160212
  Receipt Date: 20160212
  Transmission Date: 20160526
  Serious: Yes (Other)
  Sender: FDA-Public Use
  Company Number: US-PFIZER INC-2016082983

PATIENT
  Sex: Female

DRUGS (1)
  1. CLEOCIN [Suspect]
     Active Substance: CLINDAMYCIN PHOSPHATE
     Dosage: UNK

REACTIONS (7)
  - Hyperthyroidism [Unknown]
  - Tachycardia [Unknown]
  - Hypopnoea [Unknown]
  - Heart rate abnormal [Unknown]
  - Headache [Unknown]
  - Tremor [Unknown]
  - Dizziness [Unknown]
